FAERS Safety Report 7728250-7 (Version None)
Quarter: 2011Q3

REPORT INFORMATION
  Report Type: 
  Country: None (occurrence: None)
  Receive Date: 20110905
  Receipt Date: 20110826
  Transmission Date: 20111222
  Serious: Yes (Other)
  Sender: FDA-Public Use
  Company Number: PHEH2009US16534

PATIENT
  Sex: Female

DRUGS (10)
  1. RECLAST [Suspect]
     Indication: OSTEITIS DEFORMANS
     Dosage: UNK UKN, UNK
     Route: 042
     Dates: start: 20081118
  2. CITRACAL + D [Concomitant]
     Dosage: UNK UKN, UNK
  3. COSAMIN DS [Concomitant]
     Dosage: UNK UKN, UNK
  4. LIPITOR [Concomitant]
     Dosage: UNK UKN, UNK
  5. DOXYCYCLINE [Concomitant]
     Dosage: UNK UKN, UNK
  6. PRESERVISION /FRA/ [Concomitant]
     Dosage: UNK UKN, UNK
  7. GLUCOSAMINE [Concomitant]
     Dosage: UNK UKN, UNK
  8. RECLAST [Suspect]
     Dosage: UNK UKN, UNK
     Route: 042
     Dates: start: 20110127
  9. MULTI-VITAMINS [Concomitant]
     Dosage: UNK UKN, UNK
  10. XALATAN [Concomitant]
     Dosage: UNK UKN, UNK

REACTIONS (4)
  - DRUG INEFFECTIVE [None]
  - PAIN [None]
  - DISCOMFORT [None]
  - FOOT FRACTURE [None]
